FAERS Safety Report 8023647-2 (Version None)
Quarter: 2012Q1

REPORT INFORMATION
  Report Type: 
  Country: None (occurrence: None)
  Receive Date: 20120104
  Receipt Date: 20120104
  Transmission Date: 20120608
  Serious: No
  Sender: FDA-Public Use
  Company Number: None

PATIENT
  Age: 65 Year
  Sex: Male

DRUGS (1)
  1. FLUOROURACIL [Suspect]
     Indication: ACTINIC KERATOSIS
     Dosage: 3 TIMES A WEEK TOPICAL
     Route: 061
     Dates: start: 20110801, end: 20111220

REACTIONS (2)
  - NAUSEA [None]
  - MALAISE [None]
